FAERS Safety Report 11203542 (Version 3)
Quarter: 2015Q3

REPORT INFORMATION
  Report Type: Spontaneous
  Country: JP (occurrence: JP)
  Receive Date: 20150619
  Receipt Date: 20150724
  Transmission Date: 20151125
  Serious: Yes (Other)
  Sender: FDA-Public Use
  Company Number: JP-009507513-1506JPN010119

PATIENT
  Age: 61 Year
  Sex: Male
  Weight: 67 kg

DRUGS (9)
  1. GLYCYRON [Concomitant]
     Active Substance: AMMONIUM GLYCYRRHIZATE\GLYCINE\METHIONINE
     Indication: HEPATIC STEATOSIS
     Dosage: 1 DF, BID
     Route: 048
  2. TANATRIL [Concomitant]
     Active Substance: IMIDAPRIL
     Indication: HYPERTENSION
     Dosage: 10 MG, QD
     Route: 048
  3. LIPITOR [Concomitant]
     Active Substance: ATORVASTATIN CALCIUM
     Indication: LIPIDS ABNORMAL
     Dosage: 5 MG, QD
     Route: 048
  4. METFORMIN [Concomitant]
     Active Substance: METFORMIN HYDROCHLORIDE
     Dosage: 500 MG, QD
     Route: 048
  5. BELSOMRA [Suspect]
     Active Substance: SUVOREXANT
     Indication: INSOMNIA
     Dosage: 15 MG, QD
     Route: 048
     Dates: start: 20150430, end: 20150430
  6. AIMIX [Concomitant]
     Active Substance: AMLODIPINE BESYLATE\IRBESARTAN
     Indication: HYPERTENSION
     Dosage: 1 DF, QD
  7. LIOVEL [Concomitant]
     Active Substance: ALOGLIPTIN BENZOATE\PIOGLITAZONE HYDROCHLORIDE
     Indication: DIABETES MELLITUS
     Dosage: 1 DF, QD
     Route: 048
  8. MAINTATE [Concomitant]
     Active Substance: BISOPROLOL FUMARATE
     Indication: HYPERTENSION
     Dosage: 2.5 MG, QD
     Route: 048
  9. MYSLEE [Concomitant]
     Active Substance: ZOLPIDEM TARTRATE
     Indication: INSOMNIA
     Dosage: 5 MG, QD
     Route: 048
     Dates: end: 20150429

REACTIONS (4)
  - Depressed mood [Recovered/Resolved]
  - Suicidal ideation [Recovered/Resolved]
  - Nightmare [Recovered/Resolved]
  - Anxiety [Recovered/Resolved]

NARRATIVE: CASE EVENT DATE: 20150501
